FAERS Safety Report 8681138 (Version 2)
Quarter: 2013Q4

REPORT INFORMATION
  Report Type: Spontaneous
  Country: GB (occurrence: GB)
  Receive Date: 20120725
  Receipt Date: 20131101
  Transmission Date: 20140711
  Serious: Yes (Other)
  Sender: FDA-Public Use
  Company Number: GB-009507513-1207GBR008509

PATIENT
  Age: 60 Year
  Sex: Female
  Weight: 66.9 kg

DRUGS (8)
  1. JANUVIA [Suspect]
     Dosage: UNK
     Route: 048
     Dates: start: 20120704
  2. AMLODIPINE [Concomitant]
     Dosage: UNK
     Dates: start: 20120504
  3. ASPIRIN [Concomitant]
     Dosage: UNK
     Dates: start: 20120112
  4. ATORVASTATIN [Concomitant]
     Dosage: UNK
     Dates: start: 20120112
  5. CANDESARTAN [Concomitant]
     Dosage: UNK
  6. LEVEMIR [Concomitant]
     Dosage: UNK
     Dates: start: 20120112
  7. NOVORAPID [Concomitant]
     Dosage: UNK
     Dates: start: 20120112
  8. TRAMADOL HYDROCHLORIDE [Concomitant]
     Dosage: UNK
     Dates: start: 20120508, end: 20120518

REACTIONS (1)
  - Pain in extremity [Unknown]
